FAERS Safety Report 11109600 (Version 1)
Quarter: 2015Q2

REPORT INFORMATION
  Report Type: Spontaneous
  Country: EG (occurrence: EG)
  Receive Date: 20150513
  Receipt Date: 20150513
  Transmission Date: 20150821
  Serious: Yes (Hospitalization)
  Sender: FDA-Public Use
  Company Number: PHHY2015EG056449

PATIENT
  Age: 48 Year
  Sex: Male
  Weight: 57 kg

DRUGS (9)
  1. ENOXAPARIN [Suspect]
     Active Substance: ENOXAPARIN
     Indication: ACUTE MYOCARDIAL INFARCTION
     Dosage: 60 MG, EVERY 12 H
     Route: 058
  2. MORPHINE [Concomitant]
     Active Substance: MORPHINE
     Indication: ACUTE MYOCARDIAL INFARCTION
     Route: 065
  3. METALYSE [Concomitant]
     Active Substance: TENECTEPLASE
     Indication: ACUTE MYOCARDIAL INFARCTION
     Dosage: 6000 UNITS
     Route: 042
  4. OXYGEN. [Concomitant]
     Active Substance: OXYGEN
     Indication: ACUTE MYOCARDIAL INFARCTION
     Route: 065
  5. CLOPIDOGREL [Suspect]
     Active Substance: CLOPIDOGREL BISULFATE
     Indication: ACUTE MYOCARDIAL INFARCTION
     Dosage: 75 MG, QD
     Route: 065
  6. NITROGLYCERIN. [Concomitant]
     Active Substance: NITROGLYCERIN
     Indication: ACUTE MYOCARDIAL INFARCTION
     Dosage: 0.5 MG
     Route: 060
  7. ATORVASTATIN [Concomitant]
     Active Substance: ATORVASTATIN
     Indication: ACUTE MYOCARDIAL INFARCTION
     Dosage: 40 MG, QD
     Route: 048
  8. ACETYLSALICYLIC ACID [Suspect]
     Active Substance: ASPIRIN
     Indication: ACUTE MYOCARDIAL INFARCTION
     Dosage: 300 MG
     Route: 065
  9. CARVEDILOL. [Concomitant]
     Active Substance: CARVEDILOL
     Indication: ACUTE MYOCARDIAL INFARCTION
     Dosage: 3.125 MG, TID
     Route: 048

REACTIONS (5)
  - Arthralgia [Recovered/Resolved]
  - Haemarthrosis [Recovered/Resolved]
  - Feeling hot [Recovered/Resolved]
  - Tenderness [Recovered/Resolved]
  - Joint swelling [Recovered/Resolved]
